FAERS Safety Report 4567245-1 (Version None)
Quarter: 2005Q1

REPORT INFORMATION
  Report Type: 
  Country: None (occurrence: None)
  Receive Date: 20050201
  Receipt Date: 20050127
  Transmission Date: 20050727
  Serious: Yes (Disabling)
  Sender: FDA-Public Use
  Company Number: PHBS2005FI01425

PATIENT
  Age: 54 Year
  Sex: Female

DRUGS (5)
  1. AZAMUN [Concomitant]
     Indication: AUTOIMMUNE HEPATITIS
     Dosage: 175 MG/DAY
     Route: 048
     Dates: start: 20020901
  2. PREDNISONE [Concomitant]
     Indication: AUTOIMMUNE HEPATITIS
     Dosage: 15 MG/DAY
     Route: 048
     Dates: start: 20020401
  3. ENTOCORT [Concomitant]
     Indication: AUTOIMMUNE HEPATITIS
     Dosage: 6 MG/DAY
     Route: 048
     Dates: start: 20030101
  4. SANDIMMUNE [Suspect]
     Indication: AUTOIMMUNE HEPATITIS
     Dosage: 100 MG/DAY
     Route: 048
     Dates: start: 20040618, end: 20040624
  5. SANDIMMUNE [Suspect]
     Dosage: 150 MG/DAY
     Route: 048
     Dates: start: 20040625, end: 20040924

REACTIONS (2)
  - MUSCLE SPASMS [None]
  - PARESIS [None]
